FAERS Safety Report 6588772-1 (Version None)
Quarter: 2010Q1

REPORT INFORMATION
  Report Type: 
  Country: None (occurrence: None)
  Receive Date: 20100218
  Receipt Date: 20100208
  Transmission Date: 20100710
  Serious: Yes (Hospitalization)
  Sender: FDA-Public Use
  Company Number: CH-WATSON-2010-01660

PATIENT
  Age: 64 Year
  Sex: Male

DRUGS (1)
  1. FENTANYL [Suspect]
     Indication: PAIN
     Dosage: 75 MICROGRAMS/H
     Dates: start: 20050401

REACTIONS (1)
  - SECONDARY ADRENOCORTICAL INSUFFICIENCY [None]
